FAERS Safety Report 7606409-7 (Version None)
Quarter: 2011Q3

REPORT INFORMATION
  Report Type: 
  Country: None (occurrence: None)
  Receive Date: 20110713
  Receipt Date: 20110705
  Transmission Date: 20111222
  Serious: Yes (Hospitalization)
  Sender: FDA-Public Use
  Company Number: IL-SANOFI-AVENTIS-2011SA043468

PATIENT
  Age: 61 Year
  Sex: Male
  Weight: 80.5 kg

DRUGS (11)
  1. CISPLATIN [Suspect]
     Route: 042
     Dates: start: 20110622, end: 20110622
  2. XELODA [Suspect]
     Route: 048
     Dates: start: 20110622, end: 20110628
  3. AVASTIN [Suspect]
     Route: 042
     Dates: start: 20110615, end: 20110615
  4. CISPLATIN [Suspect]
     Indication: GASTRIC CANCER
     Route: 042
     Dates: start: 20110414, end: 20110414
  5. AVASTIN [Suspect]
     Indication: GASTRIC CANCER
     Route: 042
     Dates: start: 20110414, end: 20110414
  6. DOCETAXEL [Suspect]
     Route: 042
     Dates: start: 20110622, end: 20110622
  7. OMEPRADEX [Concomitant]
     Dates: start: 20100101
  8. OPTALGIN [Concomitant]
     Dates: start: 20110328
  9. GLUCOMIN [Concomitant]
     Dates: start: 20040101
  10. DOCETAXEL [Suspect]
     Indication: GASTRIC CANCER
     Route: 042
     Dates: start: 20110414, end: 20110414
  11. XELODA [Suspect]
     Indication: GASTRIC CANCER
     Route: 048
     Dates: start: 20110414

REACTIONS (1)
  - HYPOPHOSPHATAEMIA [None]
